FAERS Safety Report 6639294-0 (Version None)
Quarter: 2010Q1

REPORT INFORMATION
  Report Type: 
  Country: None (occurrence: None)
  Receive Date: 20100317
  Receipt Date: 20100310
  Transmission Date: 20100710
  Serious: Yes (Other)
  Sender: FDA-Public Use
  Company Number: GB-AMGEN-QUU395820

PATIENT
  Sex: Male
  Weight: 50.8 kg

DRUGS (5)
  1. NPLATE [Suspect]
     Indication: IDIOPATHIC THROMBOCYTOPENIC PURPURA
     Dates: start: 20091208
  2. BENDROFLUAZIDE [Concomitant]
     Dates: start: 20090801
  3. THIAMINE [Concomitant]
  4. OMEPRAZOLE [Concomitant]
  5. VITAMIN D [Concomitant]

REACTIONS (1)
  - THERAPEUTIC RESPONSE DECREASED [None]
